FAERS Safety Report 16755658 (Version 2)
Quarter: 2019Q3

REPORT INFORMATION
  Report Type: Spontaneous
  Country: PL (occurrence: PL)
  Receive Date: 20190829
  Receipt Date: 20190906
  Transmission Date: 20191005
  Serious: Yes (Other)
  Sender: FDA-Public Use
  Company Number: PL-AMGEN-POLSP2019134615

PATIENT
  Age: 54 Year
  Sex: Female

DRUGS (10)
  1. ZOLEDRONIC ACID. [Concomitant]
     Active Substance: ZOLEDRONIC ACID
     Indication: BONE DISORDER
     Dosage: 4 MILLIGRAM, Q4WK
     Route: 042
  2. TAXOTERE [Concomitant]
     Active Substance: DOCETAXEL
  3. NEULASTA [Suspect]
     Active Substance: PEGFILGRASTIM
     Indication: PROPHYLAXIS
     Dosage: 6 MILLIGRAM, EVERY 3 ^TYG^
     Route: 058
  4. VITAMIN D3 CALCIUM [Concomitant]
     Active Substance: CALCIUM\CHOLECALCIFEROL
     Dosage: 2 TABLET, QD
  5. ARANESP [Suspect]
     Active Substance: DARBEPOETIN ALFA
     Indication: PRODUCT USED FOR UNKNOWN INDICATION
     Dosage: 500 MICROGRAM, Q3WK
     Route: 058
  6. POLPRIL [Concomitant]
     Active Substance: RAMIPRIL
     Dosage: 5 MILLIGRAM, QD
  7. ATORIS [Concomitant]
     Active Substance: ATORVASTATIN CALCIUM
     Dosage: 20 MILLIGRAM, QD
  8. FIBROTINA [Concomitant]
     Dosage: UNK UNK, QD
  9. CARBOPLATIN;PACLITAXEL [Concomitant]
     Indication: OVARIAN CANCER
     Dosage: 175 MILLIGRAM/SQ. METER
     Route: 042
     Dates: start: 201806
  10. HERCEPTIN [Concomitant]
     Active Substance: TRASTUZUMAB
     Dosage: UNK
     Dates: start: 201807

REACTIONS (4)
  - Platelet count abnormal [Unknown]
  - Neuropathy peripheral [Unknown]
  - Nausea [Unknown]
  - Asthenia [Unknown]

NARRATIVE: CASE EVENT DATE: 201807
